FAERS Safety Report 25245902 (Version 1)
Quarter: 2025Q2

REPORT INFORMATION
  Report Type: Spontaneous
  Country: US (occurrence: None)
  Receive Date: 20250427
  Receipt Date: 20250427
  Transmission Date: 20250716
  Serious: Yes (Hospitalization)
  Sender: FDA-CTU
  Company Number: None

PATIENT
  Sex: Female

DRUGS (1)
  1. XELJANZ XR [Suspect]
     Active Substance: TOFACITINIB CITRATE
     Indication: Product used for unknown indication
     Dosage: 11 MG DAILY ORAL ?
     Route: 048
     Dates: start: 20221017

REACTIONS (4)
  - Joint swelling [None]
  - Condition aggravated [None]
  - Arthralgia [None]
  - Fall [None]
